FAERS Safety Report 13291143 (Version 1)
Quarter: 2017Q1

REPORT INFORMATION
  Report Type: Spontaneous
  Country: US (occurrence: US)
  Receive Date: 20170302
  Receipt Date: 20170302
  Transmission Date: 20170428
  Serious: No
  Sender: FDA-Public Use
  Company Number: US-PERRIGO-16US001548

PATIENT
  Sex: Female
  Weight: 46.71 kg

DRUGS (2)
  1. LOPERAMIDE HYDROCHLORIDE. [Suspect]
     Active Substance: LOPERAMIDE HYDROCHLORIDE
     Indication: PROPHYLAXIS AGAINST DIARRHOEA
     Dosage: 2 MG, SINGLE
     Route: 048
     Dates: start: 201602, end: 201602
  2. LOPERAMIDE HYDROCHLORIDE. [Suspect]
     Active Substance: LOPERAMIDE HYDROCHLORIDE
     Indication: DIARRHOEA
     Dosage: 2 MG AFTER 1ST LOOSE STOOL, 1 MG AFTER EACH SUBSEQUENT LOOSE STOOL, PRN
     Route: 048
     Dates: start: 201602

REACTIONS (2)
  - Off label use [Recovered/Resolved]
  - Underdose [Unknown]

NARRATIVE: CASE EVENT DATE: 201602
